FAERS Safety Report 11244923 (Version 2)
Quarter: 2015Q3

REPORT INFORMATION
  Report Type: Report from Study
  Country: GB (occurrence: GB)
  Receive Date: 20150707
  Receipt Date: 20150707
  Transmission Date: 20151125
  Serious: Yes (Death, Hospitalization)
  Sender: FDA-Public Use
  Company Number: GB-WATSON-2014-29169

PATIENT
  Age: 40 Year
  Sex: Male
  Weight: 81 kg

DRUGS (25)
  1. BACLOFEN (UNKNOWN) [Suspect]
     Active Substance: BACLOFEN
     Indication: MUSCLE SPASTICITY
     Dosage: 60 MG, UNK
     Route: 048
     Dates: start: 20120801, end: 20140120
  2. MIRTAZAPINE (UNKNOWN) [Suspect]
     Active Substance: MIRTAZAPINE
     Indication: PRODUCT USED FOR UNKNOWN INDICATION
     Dosage: UNK
     Route: 065
     Dates: start: 20140522
  3. CO-DYDRAMOL [Suspect]
     Active Substance: ACETAMINOPHEN\DIHYDROCODEINE
     Indication: ANALGESIC THERAPY
     Dosage: 2000 MG, UNKNOWN
     Route: 048
     Dates: start: 20140109
  4. RAMIPRIL (UNKNOWN) [Suspect]
     Active Substance: RAMIPRIL
     Indication: HYPERTENSION
     Dosage: 2.5 MG, UNKNOWN
     Route: 048
     Dates: start: 20140113
  5. SERTRALINE [Suspect]
     Active Substance: SERTRALINE HYDROCHLORIDE
     Indication: DEPRESSION
     Dosage: 50 MG, UNKNOWN
     Route: 048
     Dates: start: 20121210, end: 20140101
  6. LIORESAL [Suspect]
     Active Substance: BACLOFEN
     Dosage: 227.52 UG, DAILY
     Route: 037
     Dates: start: 20140225, end: 20140225
  7. LIORESAL [Suspect]
     Active Substance: BACLOFEN
     Dosage: 172.03 UG, DAILY
     Route: 037
     Dates: start: 20140122, end: 20140122
  8. BACLOFEN (UNKNOWN) [Suspect]
     Active Substance: BACLOFEN
     Indication: CEREBROVASCULAR ACCIDENT
  9. LIORESAL [Suspect]
     Active Substance: BACLOFEN
     Dosage: 207.44 UG, DAILY
     Route: 037
     Dates: start: 20140207, end: 20140224
  10. LIORESAL [Suspect]
     Active Substance: BACLOFEN
     Dosage: 207.44 UG, DAILY
     Route: 037
     Dates: start: 20140123, end: 20140127
  11. LIORESAL [Suspect]
     Active Substance: BACLOFEN
     Dosage: 120.3 UG, DAILY
     Route: 037
     Dates: start: 20140120, end: 20140120
  12. IBUPROFEN (UNKNOWN) [Suspect]
     Active Substance: IBUPROFEN
     Indication: ANALGESIC THERAPY
     Dosage: 1200 MG, UNK
     Route: 048
     Dates: start: 20140109
  13. PARACETAMOL  (UNKNOWN) [Suspect]
     Active Substance: ACETAMINOPHEN
     Indication: ANALGESIC THERAPY
     Dosage: 1000 MG, PRN
     Route: 048
     Dates: start: 20121112
  14. LIORESAL [Suspect]
     Active Substance: BACLOFEN
     Indication: MUSCLE SPASTICITY
     Dosage: 274.29 UG, DAILY
     Route: 037
     Dates: start: 20140311
  15. LIORESAL [Suspect]
     Active Substance: BACLOFEN
     Indication: CEREBROVASCULAR ACCIDENT
     Dosage: 249.98 UG,DAILY
     Route: 037
     Dates: start: 20140226, end: 20140310
  16. AMLODIPINE [Suspect]
     Active Substance: AMLODIPINE BESYLATE
     Indication: HYPERTENSION
     Dosage: 30 MG, UNK
     Route: 048
     Dates: start: 20120705
  17. METOPROLOL TARTATE [Suspect]
     Active Substance: METOPROLOL TARTRATE
     Indication: HYPERTENSION
     Dosage: 300 MG, UNKNOWN
     Route: 048
     Dates: start: 20120705
  18. SILDENAFIL (UNKNOWN) [Suspect]
     Active Substance: SILDENAFIL
     Indication: ERECTILE DYSFUNCTION
     Dosage: 50 MG, PRN
     Route: 048
     Dates: start: 20130220
  19. ZOPICLONE (UNKNOWN) [Suspect]
     Active Substance: ZOPICLONE
     Indication: INSOMNIA
     Dosage: 3.75 MG, UNKNOWN
     Route: 048
     Dates: start: 20130220
  20. LIORESAL [Suspect]
     Active Substance: BACLOFEN
     Dosage: 248.72 UG, DAILY
     Route: 037
     Dates: start: 20140128, end: 20140130
  21. LIORESAL [Suspect]
     Active Substance: BACLOFEN
     Dosage: 143.94 UG, DAILY
     Route: 037
     Dates: start: 20140121, end: 20140121
  22. LIORESAL [Suspect]
     Active Substance: BACLOFEN
     Dosage: 100 UG, DAILY
     Route: 037
     Dates: start: 20140117, end: 20140119
  23. VENLAFAXINE (UNKNOWN) [Suspect]
     Active Substance: VENLAFAXINE HYDROCHLORIDE
     Indication: DEPRESSION
     Dosage: 75 MG, UNKNOWN
     Route: 048
     Dates: start: 20140226
  24. LIORESAL [Suspect]
     Active Substance: BACLOFEN
     Dosage: 248.72 UG, DAILY
     Route: 037
     Dates: start: 20140204, end: 20140206
  25. LIORESAL [Suspect]
     Active Substance: BACLOFEN
     Dosage: 297.42 UG, DAILY
     Route: 037
     Dates: start: 20140121, end: 20140203

REACTIONS (29)
  - Alcohol poisoning [Fatal]
  - Neutrophil count increased [Fatal]
  - Condition aggravated [Fatal]
  - Scratch [Fatal]
  - Insomnia [Fatal]
  - Pulmonary oedema [Fatal]
  - Pain [Fatal]
  - Hepatic steatosis [Fatal]
  - Fall [Fatal]
  - Purulent discharge [Fatal]
  - Onychomycosis [Fatal]
  - Pulmonary congestion [Fatal]
  - Implant site infection [Fatal]
  - Depression [Fatal]
  - Erectile dysfunction [Fatal]
  - Stress [Fatal]
  - Mental disorder [Fatal]
  - Blood ethanol increased [Fatal]
  - Cardiomegaly [Fatal]
  - Scar [Fatal]
  - Wound dehiscence [Fatal]
  - Implant site extravasation [Fatal]
  - Pain in extremity [Fatal]
  - Conjunctival hyperaemia [Fatal]
  - Toxicity to various agents [Fatal]
  - Petechiae [Fatal]
  - Self injurious behaviour [Fatal]
  - Macrophages increased [Fatal]
  - Anxiety [Fatal]

NARRATIVE: CASE EVENT DATE: 20140611
